FAERS Safety Report 25020173 (Version 1)
Quarter: 2025Q1

REPORT INFORMATION
  Report Type: Spontaneous
  Country: US (occurrence: US)
  Receive Date: 20250227
  Receipt Date: 20250227
  Transmission Date: 20250409
  Serious: No
  Sender: PFIZER
  Company Number: US-PFIZER INC-PV202500023902

PATIENT
  Age: 46 Year
  Sex: Female

DRUGS (1)
  1. LORBRENA [Suspect]
     Active Substance: LORLATINIB
     Dates: start: 202410

REACTIONS (4)
  - Cognitive disorder [Unknown]
  - Emotional disorder [Unknown]
  - Oedema [Unknown]
  - Muscle twitching [Unknown]
